FAERS Safety Report 4737244-5 (Version None)
Quarter: 2005Q3

REPORT INFORMATION
  Report Type: 
  Country: None (occurrence: None)
  Receive Date: 20050728
  Receipt Date: 20050516
  Transmission Date: 20060218
  Serious: No
  Sender: FDA-Public Use
  Company Number: 200514287US

PATIENT
  Sex: Female

DRUGS (6)
  1. KETEK [Suspect]
  2. KLONOPIN [Concomitant]
  3. TOPAMAX [Concomitant]
  4. DIFLUCAN [Concomitant]
  5. FENTANYL [Concomitant]
  6. DILTIAZEM [Concomitant]

REACTIONS (5)
  - FEELING COLD [None]
  - HOT FLUSH [None]
  - INSOMNIA [None]
  - NERVOUSNESS [None]
  - RESTLESSNESS [None]
